FAERS Safety Report 6089449-1 (Version None)
Quarter: 2009Q1

REPORT INFORMATION
  Report Type: 
  Country: None (occurrence: None)
  Receive Date: 20090224
  Receipt Date: 20090220
  Transmission Date: 20090719
  Serious: Yes (Hospitalization)
  Sender: FDA-Public Use
  Company Number: US-ABBOTT-09P-163-0558427-00

PATIENT
  Sex: Female
  Weight: 65.83 kg

DRUGS (5)
  1. BIAXIN [Suspect]
     Indication: HELICOBACTER INFECTION
     Route: 048
     Dates: start: 20090201, end: 20090202
  2. AMOXICILLIN [Suspect]
     Indication: HELICOBACTER INFECTION
     Route: 048
     Dates: start: 20090201, end: 20090202
  3. PREVACID [Suspect]
     Indication: HELICOBACTER INFECTION
     Route: 048
     Dates: start: 20090201, end: 20090202
  4. LOVASTATIN [Concomitant]
     Indication: BLOOD CHOLESTEROL
     Route: 048
     Dates: start: 20070101, end: 20090101
  5. PREVACID [Concomitant]
     Indication: GASTRIC DISORDER
     Route: 048

REACTIONS (2)
  - CHEST PAIN [None]
  - PRURITUS GENERALISED [None]
